FAERS Safety Report 6497677-6 (Version None)
Quarter: 2009Q4

REPORT INFORMATION
  Report Type: 
  Country: None (occurrence: None)
  Receive Date: 20091215
  Receipt Date: 20091204
  Transmission Date: 20100525
  Serious: Yes (Other)
  Sender: FDA-Public Use
  Company Number: JP-ROCHE-674240

PATIENT
  Age: 9 Year
  Sex: Male
  Weight: 29 kg

DRUGS (6)
  1. TAMIFLU [Suspect]
     Indication: INFLUENZA
     Route: 048
     Dates: start: 20080101
  2. TAMIFLU [Suspect]
     Route: 048
     Dates: start: 20091124, end: 20091128
  3. ASVERIN [Concomitant]
     Route: 048
  4. BISOLVON [Concomitant]
     Route: 048
  5. MUCODYNE [Concomitant]
     Route: 048
  6. PERIACTIN [Concomitant]
     Route: 048

REACTIONS (1)
  - ABNORMAL BEHAVIOUR [None]
